FAERS Safety Report 15296161 (Version 2)
Quarter: 2018Q3

REPORT INFORMATION
  Report Type: Spontaneous
  Country: CH (occurrence: CH)
  Receive Date: 20180820
  Receipt Date: 20180914
  Transmission Date: 20181010
  Serious: Yes (Other)
  Sender: FDA-Public Use
  Company Number: CH-BAYER-2018-152840

PATIENT
  Sex: Female

DRUGS (3)
  1. XARELTO [Interacting]
     Active Substance: RIVAROXABAN
     Indication: THROMBOSIS PROPHYLAXIS
  2. XARELTO [Interacting]
     Active Substance: RIVAROXABAN
     Indication: JOINT STIFFNESS
  3. CIPROXINE [Suspect]
     Active Substance: CIPROFLOXACIN

REACTIONS (4)
  - Drug interaction [None]
  - Product use in unapproved indication [None]
  - Thrombosis [None]
  - Off label use [None]
